FAERS Safety Report 8220780-7 (Version None)
Quarter: 2012Q1

REPORT INFORMATION
  Report Type: 
  Country: None (occurrence: None)
  Receive Date: 20120307
  Receipt Date: 20090909
  Transmission Date: 20120608
  Serious: No
  Sender: FDA-Public Use
  Company Number: PHEH2009US11056

PATIENT
  Age: 78 Year
  Sex: Female

DRUGS (1)
  1. AFINITOR [Suspect]
     Indication: RENAL CANCER
     Dosage: 10 MG, DAILY, ORAL
     Route: 048
     Dates: start: 20090730, end: 20090908

REACTIONS (2)
  - ABDOMINAL DISCOMFORT [None]
  - CHEST PAIN [None]
